FAERS Safety Report 25520368 (Version 1)
Quarter: 2025Q3

REPORT INFORMATION
  Report Type: Spontaneous
  Country: MY (occurrence: MY)
  Receive Date: 20250704
  Receipt Date: 20250704
  Transmission Date: 20251021
  Serious: Yes (Other)
  Sender: NOVARTIS
  Company Number: MY-002147023-NVSC2025MY102071

PATIENT
  Age: 81 Year
  Sex: Female

DRUGS (1)
  1. BROLUCIZUMAB [Suspect]
     Active Substance: BROLUCIZUMAB
     Indication: Product used for unknown indication
     Route: 031
     Dates: start: 20241214

REACTIONS (6)
  - Corneal epithelium defect [Recovered/Resolved]
  - Uveitis [Recovered/Resolved]
  - Ocular discomfort [Recovered/Resolved]
  - Visual impairment [Recovering/Resolving]
  - Bullous keratopathy [Not Recovered/Not Resolved]
  - Corneal oedema [Recovered/Resolved]
